FAERS Safety Report 14928448 (Version 1)
Quarter: 2018Q2

REPORT INFORMATION
  Report Type: Spontaneous
  Country: US (occurrence: US)
  Receive Date: 20180523
  Receipt Date: 20180523
  Transmission Date: 20180711
  Serious: Yes (Other)
  Sender: FDA-Public Use
  Company Number: US-FDC LIMITED-2017RIS00164

PATIENT
  Sex: Male
  Weight: 68.27 kg

DRUGS (6)
  1. TIMOLOL MALEATE. [Suspect]
     Active Substance: TIMOLOL MALEATE
     Indication: OPEN ANGLE GLAUCOMA
     Dosage: 1 DROP, 2X/DAY IN BOTH EYES
     Route: 047
     Dates: start: 2014, end: 201707
  2. HUMULIN R [Suspect]
     Active Substance: INSULIN HUMAN
     Indication: TYPE 1 DIABETES MELLITUS
  3. ASPIRIN. [Concomitant]
     Active Substance: ASPIRIN
  4. LOSARTAN/HCTZ [Concomitant]
     Active Substance: HYDROCHLOROTHIAZIDE\LOSARTAN
  5. ATORVASTATIN [Concomitant]
     Active Substance: ATORVASTATIN
  6. HUMULIN N [Suspect]
     Active Substance: INSULIN HUMAN
     Indication: TYPE 1 DIABETES MELLITUS
     Dosage: UNK

REACTIONS (9)
  - Hypoglycaemia unawareness [Recovered/Resolved]
  - Eye pain [Unknown]
  - Blood glucose increased [Unknown]
  - Vertigo [Unknown]
  - Expired product administered [Recovered/Resolved]
  - Vision blurred [Recovering/Resolving]
  - Tooth disorder [Unknown]
  - Oropharyngeal pain [Recovering/Resolving]
  - Pruritus [Recovering/Resolving]

NARRATIVE: CASE EVENT DATE: 2016
